FAERS Safety Report 11232118 (Version 1)
Quarter: 2015Q3

REPORT INFORMATION
  Report Type: Spontaneous
  Country: US (occurrence: US)
  Receive Date: 20150701
  Receipt Date: 20150701
  Transmission Date: 20151125
  Serious: No
  Sender: FDA-Public Use
  Company Number: US-BAYER-2015-361100

PATIENT
  Age: 25 Year
  Sex: Female

DRUGS (1)
  1. MIRENA [Suspect]
     Active Substance: LEVONORGESTREL
     Indication: CONTRACEPTION
     Dosage: 20 MCG/24HR, CONT
     Route: 015
     Dates: start: 20150617, end: 20150618

REACTIONS (6)
  - Procedural pain [Not Recovered/Not Resolved]
  - Procedural pain [Recovered/Resolved]
  - Paraesthesia [Not Recovered/Not Resolved]
  - Procedural headache [Recovered/Resolved]
  - Mood altered [None]
  - Vision blurred [None]
